FAERS Safety Report 8778301 (Version 3)
Quarter: 2013Q2

REPORT INFORMATION
  Report Type: Report from Study
  Country: JP (occurrence: JP)
  Receive Date: 20120911
  Receipt Date: 20130410
  Transmission Date: 20140414
  Serious: Yes (Hospitalization)
  Sender: FDA-Public Use
  Company Number: JP-009507513-2012SP030096

PATIENT
  Age: 49 Year
  Sex: Male
  Weight: 86 kg

DRUGS (13)
  1. PEGINTRON [Suspect]
     Indication: CHRONIC HEPATITIS C
     Dosage: 1.5 MICROGRAMS PER KILOGRAMS,QW
     Route: 058
     Dates: start: 20120517, end: 20120524
  2. PEGINTRON [Suspect]
     Dosage: 1.4 MICROGRAM PER KILOGRAM, QW
     Route: 058
     Dates: start: 20120620, end: 20120627
  3. PEGINTRON [Suspect]
     Dosage: 1.2 MICROGRAM PER KILOGRAM, QW
     Route: 058
     Dates: start: 20120628
  4. REBETOL [Suspect]
     Dosage: 1000 MG, QD
     Route: 048
     Dates: start: 20120517, end: 20120524
  5. REBETOL [Suspect]
     Dosage: 400 MG, QD
     Route: 048
     Dates: start: 20120802, end: 20120815
  6. TELAVIC [Suspect]
     Indication: CHRONIC HEPATITIS C
     Dosage: 2250 MG, QD
     Route: 048
     Dates: start: 20120517, end: 20120524
  7. ADALAT CR [Concomitant]
     Indication: HYPERTENSION
     Dosage: 40 MG, QD
     Route: 048
  8. OLMETEC [Concomitant]
     Indication: HYPERTENSION
     Dosage: 20 MG, QD
     Route: 048
  9. TAKEPRON [Concomitant]
     Indication: PROPHYLAXIS
     Dosage: 15 MG, QD
     Route: 048
     Dates: start: 20120517, end: 20120524
  10. CALONAL [Concomitant]
     Indication: PROPHYLAXIS
     Dosage: 300 MG, QD, FORMULATION: POR
     Route: 048
     Dates: start: 20120517, end: 20120524
  11. ALLEGRA [Concomitant]
     Indication: PROPHYLAXIS
     Dosage: 60 MG, QD
     Route: 048
     Dates: start: 20120517
  12. DERMOVATE [Concomitant]
     Indication: PROPHYLAXIS
     Dosage: 5 G, QD, AS NEEDED
     Route: 061
     Dates: start: 20120517
  13. ZYLORIC [Concomitant]
     Indication: HYPERURICAEMIA
     Dosage: UPDATE (13JUN2012)
     Route: 048
     Dates: start: 20120525

REACTIONS (1)
  - Renal impairment [Recovered/Resolved]
